FAERS Safety Report 6639828-6 (Version None)
Quarter: 2010Q1

REPORT INFORMATION
  Report Type: 
  Country: None (occurrence: None)
  Receive Date: 20100301
  Receipt Date: 20090909
  Transmission Date: 20100710
  Serious: Yes (Hospitalization, Other)
  Sender: FDA-Public Use
  Company Number: RB-20271-2009

PATIENT
  Age: 50 Year
  Sex: Male

DRUGS (2)
  1. SUBOXONE [Suspect]
     Indication: DRUG DEPENDENCE
     Dosage: PATIENT RECEIVED ONE 4 MG DOSE.  SUBLINGUAL
     Route: 060
     Dates: start: 20090905, end: 20090905
  2. HALDOL [Suspect]
     Indication: PSYCHOTIC DISORDER
     Dosage: PATIENT RECEIVED ONE 5 MG INTRAMUSCULAR INJECTION.  INTRAMUSCULAR
     Route: 030
     Dates: start: 20090905, end: 20090905

REACTIONS (2)
  - BLOOD PRESSURE DECREASED [None]
  - HEART RATE DECREASED [None]
